FAERS Safety Report 11866280 (Version 2)
Quarter: 2016Q1

REPORT INFORMATION
  Report Type: Spontaneous
  Country: DE (occurrence: DE)
  Receive Date: 20151223
  Receipt Date: 20160211
  Transmission Date: 20160526
  Serious: Yes (Death)
  Sender: FDA-Public Use
  Company Number: DE-BIOGEN-2015BI00164094

PATIENT
  Age: 53 Year
  Sex: Female

DRUGS (3)
  1. TYSABRI [Suspect]
     Active Substance: NATALIZUMAB
     Indication: PRODUCT USED FOR UNKNOWN INDICATION
     Route: 042
     Dates: start: 20071115, end: 20120112
  2. RAMIPRIL. [Concomitant]
     Active Substance: RAMIPRIL
     Indication: HYPERTENSION
     Route: 048
     Dates: start: 20140617, end: 20151210
  3. RAMIPLUS [Concomitant]
     Indication: HYPERTENSION
     Dosage: 2.5/12.5 MG
     Route: 048
     Dates: start: 20140617, end: 20151210

REACTIONS (1)
  - Death [Fatal]

NARRATIVE: CASE EVENT DATE: 20151210
